FAERS Safety Report 17232091 (Version 2)
Quarter: 2020Q1

REPORT INFORMATION
  Report Type: Report from Study
  Country: US (occurrence: US)
  Receive Date: 20200103
  Receipt Date: 20200331
  Transmission Date: 20200409
  Serious: No
  Sender: FDA-Public Use
  Company Number: US-SA-2020SA001369

PATIENT
  Sex: Female

DRUGS (1)
  1. SARILUMAB [Suspect]
     Active Substance: SARILUMAB
     Indication: ARTHRITIS
     Dosage: 200 MG, QOW
     Route: 058
     Dates: start: 20191204

REACTIONS (2)
  - Inappropriate schedule of product administration [Unknown]
  - Arthritis [Unknown]
